FAERS Safety Report 6295443-8 (Version None)
Quarter: 2009Q3

REPORT INFORMATION
  Report Type: 
  Country: None (occurrence: None)
  Receive Date: 20090730
  Receipt Date: 20090721
  Transmission Date: 20100115
  Serious: Yes (Death)
  Sender: FDA-Public Use
  Company Number: GXKR2009ES08314

PATIENT
  Age: 63 Year
  Sex: Male
  Weight: 85 kg

DRUGS (5)
  1. DOXYCYCLINE [Suspect]
     Dosage: 100 MG, BID (HOSPITAL DAYS 5-10)
  2. LEVOFLOXACIN [Suspect]
     Indication: HEPATITIS
     Dosage: 500 MG, BID, DAY 1 TO 4
  3. LEVOFLOXACIN [Suspect]
     Indication: PERICARDITIS
     Dosage: 500 MG, BID, DAY 1 TO 4
  4. LEVOFLOXACIN [Suspect]
     Indication: PNEUMONIA PRIMARY ATYPICAL
     Dosage: 500 MG, BID, DAY 1 TO 4
  5. NAPROXEN [Suspect]
     Dosage: 500 MG, TID, DAY 7 TO 9

REACTIONS (14)
  - ACUTE HEPATIC FAILURE [None]
  - ASTHENIA [None]
  - CHOLESTASIS [None]
  - CHROMATURIA [None]
  - COAGULOPATHY [None]
  - DECREASED APPETITE [None]
  - ENCEPHALOPATHY [None]
  - HEPATIC NECROSIS [None]
  - HEPATITIS FULMINANT [None]
  - NO THERAPEUTIC RESPONSE [None]
  - PERITONEAL EFFUSION [None]
  - PNEUMONIA MYCOPLASMAL [None]
  - RENAL FAILURE [None]
  - WEIGHT DECREASED [None]
